FAERS Safety Report 19519672 (Version 1)
Quarter: 2021Q3

REPORT INFORMATION
  Report Type: Spontaneous
  Country: US (occurrence: US)
  Receive Date: 20210712
  Receipt Date: 20210712
  Transmission Date: 20211014
  Serious: No
  Sender: FDA-Public Use
  Company Number: US-GW PHARMA-202107USGW03281

PATIENT

DRUGS (1)
  1. EPIDIOLEX [Suspect]
     Active Substance: CANNABIDIOL
     Indication: EPILEPSY
     Dosage: 700 MILLIGRAM, BID
     Route: 048

REACTIONS (5)
  - Product dose omission issue [Unknown]
  - Product supply issue [Unknown]
  - Seizure [Unknown]
  - Emergency care [Unknown]
  - Product use in unapproved indication [Unknown]
